FAERS Safety Report 23559012 (Version 2)
Quarter: 2024Q2

REPORT INFORMATION
  Report Type: Spontaneous
  Country: US (occurrence: US)
  Receive Date: 20240223
  Receipt Date: 20240523
  Transmission Date: 20240716
  Serious: No
  Sender: FDA-Public Use
  Company Number: US-BIOCON BIOLOGICS LIMITED-2023M1122102

PATIENT
  Sex: Male
  Weight: 88.9 kg

DRUGS (2)
  1. INSULIN GLARGINE [Suspect]
     Active Substance: INSULIN GLARGINE
     Indication: Product used for unknown indication
     Dosage: 32 INTERNATIONAL UNIT, QD (32 UNITS/ML, QD (ONCE A DAY)
     Route: 058
  2. DEVICE [Suspect]
     Active Substance: DEVICE
     Indication: Type 2 diabetes mellitus

REACTIONS (3)
  - Device breakage [Unknown]
  - Device leakage [Unknown]
  - Product quality issue [Unknown]
